FAERS Safety Report 7315282-6 (Version None)
Quarter: 2011Q1

REPORT INFORMATION
  Report Type: 
  Country: None (occurrence: None)
  Receive Date: 20110215
  Receipt Date: 20110201
  Transmission Date: 20110831
  Serious: Yes (Life-Threatening)
  Sender: FDA-Public Use
  Company Number: DSJ-2011-01265

PATIENT
  Age: 78 Year
  Sex: Male
  Weight: 65 kg

DRUGS (12)
  1. SPIRIVA (TIOTROPIUM BROMIDE) (INHALATION VAPOUR) (TIOTROPIUM BROMIDE) [Concomitant]
  2. SALIGREN (CEVIMELINE HYDROCHLORIDE) (CAPSULE) (CEVIMELINE [Suspect]
     Indication: DRY MOUTH
     Dosage: 90 MG (30 MG, 3 IN 1 D), PER ORAL
     Route: 048
     Dates: start: 20060131, end: 20100608
  3. DIOVAN [Concomitant]
  4. ISODINE GARGLE (POVIDONE-IODINE) (GARGLE) (POVIDONE-IODINE) [Concomitant]
  5. CLARITH (CLARITHROMYCIN) (TABLET) (CLARITHROMYCIN) [Concomitant]
  6. ADOAIR (FLUTICASONE PROPIONATE, SALMETEROL XINAFOATE) (INHALATION VAPO [Concomitant]
  7. CONIEL (BENIDIPINE HYDROCHLORIDE) (TABLET) (BENIDIPINE HYDROCHLORIDE) [Concomitant]
  8. CIBENOL (CIBENZOLINE SUCCINATE) (TABLET) (CIBENZOLINE SUCCINATE) [Concomitant]
  9. WARFARIN SODIUM [Concomitant]
  10. TAKEPRON OD (LANSOPRAZOLE) (TABLET) (LANSOPRAZOLE) [Concomitant]
  11. THEODUR (THEOPHYLLINE) (TABLET) (THEOPHYLLINE) [Concomitant]
  12. LIVALO [Concomitant]

REACTIONS (2)
  - INTERSTITIAL LUNG DISEASE [None]
  - CONDITION AGGRAVATED [None]
